FAERS Safety Report 24811974 (Version 1)
Quarter: 2025Q1

REPORT INFORMATION
  Report Type: Spontaneous
  Country: US (occurrence: US)
  Receive Date: 20250106
  Receipt Date: 20250106
  Transmission Date: 20250409
  Serious: No
  Sender: BRAINTREE
  Company Number: US-BRAINTREE LABORATORIES, INC.-2024BTE00268

PATIENT
  Sex: Female
  Weight: 158.73 kg

DRUGS (2)
  1. SUTAB [Suspect]
     Active Substance: MAGNESIUM SULFATE\POTASSIUM CHLORIDE\SODIUM SULFATE
     Indication: Colonoscopy
  2. DULCOLAX (BISACODYL) [Suspect]
     Active Substance: BISACODYL
     Indication: Colonoscopy

REACTIONS (5)
  - Feeling hot [Recovered/Resolved]
  - Pruritus [Recovered/Resolved]
  - Urticaria [Recovered/Resolved]
  - Drug ineffective [Recovered/Resolved]
  - Underdose [Recovered/Resolved]
